FAERS Safety Report 5091990-5 (Version None)
Quarter: 2006Q3

REPORT INFORMATION
  Report Type: 
  Country: None (occurrence: None)
  Receive Date: 20060825
  Receipt Date: 20060809
  Transmission Date: 20061208
  Serious: Yes (Hospitalization)
  Sender: FDA-Public Use
  Company Number: FR200608001652

PATIENT
  Sex: Male
  Weight: 72 kg

DRUGS (4)
  1. ALIMTA [Suspect]
     Indication: LUNG NEOPLASM MALIGNANT
     Dosage: INTRAVENOUS
     Route: 042
     Dates: start: 20060313, end: 20060313
  2. FOLIC ACID [Concomitant]
  3. AMARYL [Concomitant]
  4. ESOMEPRAZOLE (ESOMEPRAZOLE) [Concomitant]

REACTIONS (4)
  - PANCYTOPENIA [None]
  - PYREXIA [None]
  - SKIN EXFOLIATION [None]
  - URTICARIA GENERALISED [None]
